FAERS Safety Report 7796015-6 (Version None)
Quarter: 2011Q4

REPORT INFORMATION
  Report Type: 
  Country: None (occurrence: None)
  Receive Date: 20111004
  Receipt Date: 20110930
  Transmission Date: 20120403
  Serious: Yes (Other)
  Sender: FDA-Public Use
  Company Number: HU-PFIZER INC-2011235426

PATIENT
  Age: 40 Year
  Sex: Male
  Weight: 94 kg

DRUGS (2)
  1. ATORVASTATIN CALCIUM [Suspect]
     Dosage: UNK
     Dates: start: 20110301, end: 20110801
  2. RAMIPRIL [Concomitant]
     Dosage: UNK
     Dates: start: 20100101

REACTIONS (2)
  - HEPATIC PAIN [None]
  - LIVER DISORDER [None]
